FAERS Safety Report 8977020 (Version 3)
Quarter: 2013Q1

REPORT INFORMATION
  Report Type: Spontaneous
  Country: US (occurrence: US)
  Receive Date: 20121220
  Receipt Date: 20130107
  Transmission Date: 20140127
  Serious: Yes (Other)
  Sender: FDA-Public Use
  Company Number: US-PFIZER INC-2012321940

PATIENT
  Age: 34 Year
  Sex: Female

DRUGS (17)
  1. IBUPROFEN [Suspect]
     Indication: MUSCULOSKELETAL CHEST PAIN
     Dosage: UNK
     Route: 065
  2. OXAPROZIN [Interacting]
     Indication: BURSITIS
     Dosage: 600 MG, 2X/DAY
     Route: 065
  3. NAPROXEN SODIUM [Interacting]
     Indication: MUSCULOSKELETAL CHEST PAIN
     Dosage: 440 MG, 2X/DAY
     Route: 065
  4. LORAZEPAM [Interacting]
     Route: 065
  5. ESTRADIOL [Interacting]
     Indication: PRODUCT USED FOR UNKNOWN INDICATION
     Route: 065
  6. METHOCARBAMOL [Interacting]
     Dosage: 500-1000 MG 4 TIMES A DAY
     Route: 065
  7. CITALOPRAM [Interacting]
     Indication: ANXIETY
     Route: 065
  8. CITALOPRAM [Interacting]
     Indication: PRODUCT USED FOR UNKNOWN INDICATION
     Route: 065
  9. CITALOPRAM [Interacting]
     Indication: ANXIETY
     Dosage: 20 MG/DAY
     Route: 065
  10. CITALOPRAM [Interacting]
     Indication: PRODUCT USED FOR UNKNOWN INDICATION
     Dosage: 20 MG/DAY
     Route: 065
  11. CITALOPRAM [Interacting]
     Route: 065
  12. CITALOPRAM [Interacting]
     Dosage: 40 MG/DAY
     Route: 065
  13. HYDROXYZINE EMBONATE [Interacting]
     Indication: PRODUCT USED FOR UNKNOWN INDICATION
     Dosage: 50-100 MG AT BEDTIME
     Route: 065
  14. ALBUTEROL [Interacting]
     Indication: WHEEZING
     Dosage: 2 PUFFS
     Route: 065
  15. ALBUTEROL [Interacting]
     Indication: COUGH
  16. ACETAMINOPHEN [Concomitant]
     Dosage: UNK
     Route: 065
  17. BUSPIRONE [Concomitant]
     Dosage: 10 MG, 2X/DAY
     Route: 065

REACTIONS (4)
  - Increased tendency to bruise [Recovering/Resolving]
  - Drug interaction [Unknown]
  - Impaired healing [Unknown]
  - Bursitis [None]
